FAERS Safety Report 18178314 (Version 3)
Quarter: 2020Q3

REPORT INFORMATION
  Report Type: Spontaneous
  Country: BR (occurrence: BR)
  Receive Date: 20200821
  Receipt Date: 20200928
  Transmission Date: 20201103
  Serious: Yes (Other)
  Sender: FDA-Public Use
  Company Number: BR-TOLMAR, INC.-20BR022445

PATIENT
  Age: 60 Year
  Sex: Male

DRUGS (1)
  1. ELIGARD [Suspect]
     Active Substance: LEUPROLIDE ACETATE
     Indication: PROSTATE CANCER
     Dosage: 22.5 MG, Q 3 MONTH
     Route: 058

REACTIONS (5)
  - Prostate cancer [Unknown]
  - Blood testosterone increased [Unknown]
  - Drug ineffective [Unknown]
  - Prostatic specific antigen increased [Unknown]
  - Pelvic pain [Unknown]

NARRATIVE: CASE EVENT DATE: 2020
